FAERS Safety Report 19507031 (Version 2)
Quarter: 2021Q3

REPORT INFORMATION
  Report Type: Spontaneous
  Country: GB (occurrence: GB)
  Receive Date: 20210708
  Receipt Date: 20210816
  Transmission Date: 20211014
  Serious: Yes (Disabling, Other)
  Sender: FDA-Public Use
  Company Number: GB-MYLANLABS-2021M1039395

PATIENT
  Age: 18 Year
  Sex: Female
  Weight: 79.9 kg

DRUGS (5)
  1. SLEEPEAZE [DIPHENHYDRAMINE HYDROCHLORIDE] [Suspect]
     Active Substance: DIPHENHYDRAMINE HYDROCHLORIDE
     Indication: SLEEP DEFICIT
     Dosage: 25 MILLIGRAM
     Route: 048
     Dates: start: 20210202
  2. CLONAZEPAM. [Suspect]
     Active Substance: CLONAZEPAM
     Indication: AGITATION
     Dosage: 2 MILLIGRAM
     Route: 048
     Dates: start: 20210621
  3. ARIPIPRAZOLE. [Suspect]
     Active Substance: ARIPIPRAZOLE
     Indication: PSYCHOTIC DISORDER
     Dosage: 15 MILLIGRAM
     Route: 048
     Dates: start: 20170317
  4. OLANZAPINE. [Suspect]
     Active Substance: OLANZAPINE
     Indication: PSYCHOTIC DISORDER
     Dosage: UNK
     Route: 048
     Dates: end: 20210621
  5. ORLISTAT. [Suspect]
     Active Substance: ORLISTAT
     Indication: ABNORMAL WEIGHT GAIN
     Dosage: 60 MILLIGRAM/KILOGRAM
     Route: 048
     Dates: start: 20190618

REACTIONS (9)
  - Psychotic disorder [Unknown]
  - Anxiety [Unknown]
  - Weight increased [Recovered/Resolved with Sequelae]
  - Medication error [Recovered/Resolved with Sequelae]
  - Breast enlargement [Unknown]
  - Drug abuse [Recovered/Resolved]
  - Depression [Unknown]
  - Hyperprolactinaemia [Recovered/Resolved with Sequelae]
  - Weight decreased [Recovered/Resolved with Sequelae]

NARRATIVE: CASE EVENT DATE: 20170317
